FAERS Safety Report 6524941-4 (Version None)
Quarter: 2009Q4

REPORT INFORMATION
  Report Type: 
  Country: None (occurrence: None)
  Receive Date: 20091230
  Receipt Date: 20091230
  Transmission Date: 20100525
  Serious: No
  Sender: FDA-Public Use
  Company Number: None

PATIENT
  Age: 75 Year
  Sex: Female
  Weight: 54.4316 kg

DRUGS (6)
  1. COLD REMEDY RAPID MELTS [Suspect]
     Dosage: 3-4X/DAY
     Dates: start: 20091021, end: 20091025
  2. SYNTHROID [Concomitant]
  3. XALATAN OPTH DROPS [Concomitant]
  4. MULTI-VITAMIN [Concomitant]
  5. GLUCOSAMINE WITH CHONDROITIN [Concomitant]
  6. CALCIUM [Concomitant]

REACTIONS (3)
  - AGEUSIA [None]
  - GLOSSODYNIA [None]
  - ORAL PAIN [None]
